FAERS Safety Report 20759855 (Version 2)
Quarter: 2022Q2

REPORT INFORMATION
  Report Type: Spontaneous
  Country: US (occurrence: US)
  Receive Date: 20220427
  Receipt Date: 20220515
  Transmission Date: 20220721
  Serious: Yes (Other)
  Sender: FDA-Public Use
  Company Number: US-Blueprint Medicines Corporation-SP-US-2022-001190

PATIENT
  Age: 73 Year
  Sex: Female

DRUGS (1)
  1. AYVAKIT [Suspect]
     Active Substance: AVAPRITINIB
     Indication: Gastrointestinal stromal tumour
     Dosage: TAKE 1 TABLET BY MOUTH DAILY FOR 5 DAYS FOLLOWED BY 2 DAYS OF NOT TAKING
     Route: 048
     Dates: start: 20200123

REACTIONS (14)
  - Neoplasm [Recovering/Resolving]
  - Ureteral catheterisation [Recovering/Resolving]
  - Neoplasm progression [Unknown]
  - Nephrostomy [Unknown]
  - Raynaud^s phenomenon [Unknown]
  - Feeling abnormal [Unknown]
  - Back pain [Unknown]
  - Drug interaction [Unknown]
  - Drug ineffective [Unknown]
  - Nail infection [Recovering/Resolving]
  - COVID-19 [Recovering/Resolving]
  - Decubitus ulcer [Recovering/Resolving]
  - Off label use [Unknown]
  - Onychomycosis [Unknown]

NARRATIVE: CASE EVENT DATE: 20220418
